FAERS Safety Report 19991949 (Version 3)
Quarter: 2022Q2

REPORT INFORMATION
  Report Type: Spontaneous
  Country: US (occurrence: US)
  Receive Date: 20211025
  Receipt Date: 20220401
  Transmission Date: 20220721
  Serious: No
  Sender: FDA-Public Use
  Company Number: US-PFIZER INC-202100963752

PATIENT
  Age: 53 Year
  Sex: Male
  Weight: 106.58 kg

DRUGS (9)
  1. INLYTA [Suspect]
     Active Substance: AXITINIB
     Indication: Renal cell carcinoma
     Dosage: 5 MG, 2X/DAY
     Route: 048
     Dates: start: 20210603
  2. INLYTA [Suspect]
     Active Substance: AXITINIB
     Dosage: 5 MG, CYCLIC (TAKING IT ABOUT 3 DAYS A WEEK NOW INSTEAD OF EVERY DAY)
     Route: 048
     Dates: start: 20210603
  3. ALPRAZOLAM [Concomitant]
     Active Substance: ALPRAZOLAM
     Dosage: UNK
  4. AMLODIPINE BESYLATE [Concomitant]
     Active Substance: AMLODIPINE BESYLATE
     Dosage: UNK
  5. ELIQUIS [Concomitant]
     Active Substance: APIXABAN
     Dosage: UNK
  6. MELATONIN [Concomitant]
     Active Substance: MELATONIN
     Dosage: UNK
  7. SIMVASTATIN [Concomitant]
     Active Substance: SIMVASTATIN
     Dosage: UNK
  8. TYLENOL [Concomitant]
     Active Substance: ACETAMINOPHEN
     Dosage: UNK
  9. ATROPINE\DIPHENOXYLATE [Concomitant]
     Active Substance: ATROPINE\DIPHENOXYLATE
     Dosage: UNK

REACTIONS (5)
  - Off label use [Unknown]
  - Dysphonia [Unknown]
  - Fatigue [Unknown]
  - Pruritus [Unknown]
  - Abdominal discomfort [Unknown]
